FAERS Safety Report 22293421 (Version 2)
Quarter: 2023Q2

REPORT INFORMATION
  Report Type: Report from Study
  Country: US (occurrence: US)
  Receive Date: 20230508
  Receipt Date: 20230606
  Transmission Date: 20230721
  Serious: Yes (Hospitalization)
  Sender: FDA-Public Use
  Company Number: US-UCBSA-2022064690

PATIENT
  Sex: Female
  Weight: 72.562 kg

DRUGS (2)
  1. CERTOLIZUMAB PEGOL [Suspect]
     Active Substance: CERTOLIZUMAB PEGOL
     Indication: Rheumatoid arthritis
     Dosage: 200 MILLIGRAM, EV 4 WEEKS
  2. CERTOLIZUMAB PEGOL [Suspect]
     Active Substance: CERTOLIZUMAB PEGOL
     Dosage: 400 MILLIGRAM, EV 2 WEEKS(QOW)
     Route: 058
     Dates: start: 20221014, end: 20230301

REACTIONS (9)
  - Blood pressure increased [Recovering/Resolving]
  - Hip arthroplasty [Not Recovered/Not Resolved]
  - Fatigue [Not Recovered/Not Resolved]
  - Heart valve incompetence [Not Recovered/Not Resolved]
  - Nasopharyngitis [Recovered/Resolved]
  - Sinusitis [Recovered/Resolved]
  - Arthropathy [Unknown]
  - Inappropriate schedule of product administration [Unknown]
  - Intentional dose omission [Unknown]

NARRATIVE: CASE EVENT DATE: 20220101
